FAERS Safety Report 10078903 (Version 1)
Quarter: 2014Q2

REPORT INFORMATION
  Report Type: Spontaneous
  Country: US (occurrence: None)
  Receive Date: 20140414
  Receipt Date: 20140414
  Transmission Date: 20141212
  Serious: No
  Sender: FDA-Public Use
  Company Number: None

PATIENT
  Age: 28 Year
  Sex: Male

DRUGS (4)
  1. SERTRALINE [Suspect]
     Dosage: 1 TABLET IN AM 2 IN PM
     Dates: start: 20140327, end: 20140410
  2. LAMICTAL [Concomitant]
  3. GABAPNTIN [Concomitant]
  4. PRAZOSIN [Concomitant]

REACTIONS (2)
  - Drug dispensing error [None]
  - Wrong drug administered [None]
